FAERS Safety Report 24019125 (Version 1)
Quarter: 2024Q2

REPORT INFORMATION
  Report Type: Spontaneous
  Country: DK (occurrence: DK)
  Receive Date: 20240627
  Receipt Date: 20240627
  Transmission Date: 20240715
  Serious: Yes (Death, Life-Threatening, Hospitalization, Other)
  Sender: FDA-Public Use
  Company Number: None

PATIENT
  Age: 86 Year
  Sex: Female

DRUGS (2)
  1. PRADAXA [Suspect]
     Active Substance: DABIGATRAN ETEXILATE MESYLATE
     Indication: Thrombosis prophylaxis
     Route: 048
     Dates: start: 20150109, end: 20240607
  2. PRADAXA [Suspect]
     Active Substance: DABIGATRAN ETEXILATE MESYLATE
     Indication: Atrial fibrillation

REACTIONS (7)
  - Haemorrhage intracranial [Fatal]
  - Hemiparesis [Unknown]
  - IIIrd nerve paresis [Unknown]
  - Neurologic neglect syndrome [Unknown]
  - Aphasia [Unknown]
  - Facial paresis [Unknown]
  - Dysarthria [Unknown]

NARRATIVE: CASE EVENT DATE: 20240601
